FAERS Safety Report 14026720 (Version 1)
Quarter: 2017Q3

REPORT INFORMATION
  Report Type: Spontaneous
  Country: US (occurrence: CN)
  Receive Date: 20170929
  Receipt Date: 20170929
  Transmission Date: 20171128
  Serious: Yes (Life-Threatening, Hospitalization, Other)
  Sender: FDA-Public Use
  Company Number: CN-ALLERGAN-1755331US

PATIENT
  Age: 29 Year
  Sex: Female

DRUGS (3)
  1. METRONIDAZOLE UNK [Suspect]
     Active Substance: METRONIDAZOLE
     Indication: ANTIBIOTIC THERAPY
     Dosage: UNK
     Route: 065
  2. CEPHALOSPORIN [Suspect]
     Active Substance: UNSPECIFIED INGREDIENT
     Indication: ANTIBIOTIC THERAPY
     Route: 065
  3. CLOTRIMAZOLE. [Suspect]
     Active Substance: CLOTRIMAZOLE
     Indication: ANTIBIOTIC THERAPY
     Route: 065

REACTIONS (9)
  - Drug-induced liver injury [Recovering/Resolving]
  - Blood bilirubin increased [Recovering/Resolving]
  - Vanishing bile duct syndrome [Recovering/Resolving]
  - Chromaturia [Recovering/Resolving]
  - Hepatitis B surface antibody positive [Recovering/Resolving]
  - Blood alkaline phosphatase increased [Recovering/Resolving]
  - Pruritus [Recovering/Resolving]
  - Bile duct stone [Recovering/Resolving]
  - Alanine aminotransferase abnormal [Recovering/Resolving]
